FAERS Safety Report 16160762 (Version 3)
Quarter: 2019Q4

REPORT INFORMATION
  Report Type: Report from Study
  Country: US (occurrence: US)
  Receive Date: 20190405
  Receipt Date: 20191108
  Transmission Date: 20200122
  Serious: Yes (Death, Hospitalization)
  Sender: FDA-Public Use
  Company Number: US-ROCHE-2292788

PATIENT
  Age: 68 Year
  Sex: Male
  Weight: 82.17 kg

DRUGS (24)
  1. VITAMIN D3 [Concomitant]
     Active Substance: CHOLECALCIFEROL
     Route: 065
  2. DELTASONE [Concomitant]
     Active Substance: PREDNISONE
     Indication: OBLITERATIVE BRONCHIOLITIS
     Route: 065
  3. GLUCOSE [Concomitant]
     Active Substance: DEXTROSE
     Dosage: 16-32G
     Route: 065
  4. CLARITIN [Concomitant]
     Active Substance: LORATADINE
     Route: 065
  5. NOXAFIL [Concomitant]
     Active Substance: POSACONAZOLE
     Route: 065
  6. FLUTICASONE;SALMETEROL [Concomitant]
     Active Substance: FLUTICASONE PROPIONATE\SALMETEROL XINAFOATE
     Dosage: 500-50 MCG/DOSE INHALER?1 PUFF
     Route: 065
  7. TOBI [Concomitant]
     Active Substance: TOBRAMYCIN
  8. PIRFENIDONE. [Suspect]
     Active Substance: PIRFENIDONE
     Indication: OBLITERATIVE BRONCHIOLITIS
     Route: 048
     Dates: start: 20181208, end: 20190920
  9. ZOVIRAX [Concomitant]
     Active Substance: ACYCLOVIR
     Route: 048
  10. REFRESH PLUS [Concomitant]
     Active Substance: CARBOXYMETHYLCELLULOSE SODIUM
     Dosage: 1 DROP
     Route: 047
  11. TYLENOL [Concomitant]
     Active Substance: ACETAMINOPHEN
     Dosage: ORAL SOLUTION
     Route: 048
  12. CORTEF [Concomitant]
     Active Substance: HYDROCORTISONE
     Route: 065
  13. INSULIN LISPRO [Concomitant]
     Active Substance: INSULIN LISPRO
     Dosage: 0-5 UNITS AND MILD CORRECTIVE SCALE
     Route: 065
  14. IMODIUM [Concomitant]
     Active Substance: LOPERAMIDE HYDROCHLORIDE
     Route: 065
  15. LOPRESSOR [Concomitant]
     Active Substance: METOPROLOL TARTRATE
     Route: 065
  16. SINGULAIR [Concomitant]
     Active Substance: MONTELUKAST SODIUM
     Indication: OBLITERATIVE BRONCHIOLITIS
     Route: 065
  17. TYLENOL [Concomitant]
     Active Substance: ACETAMINOPHEN
     Route: 048
  18. BENADRYL [Concomitant]
     Active Substance: DIPHENHYDRAMINE HYDROCHLORIDE
     Route: 065
  19. INSULIN ASPART PROTAMINE [Concomitant]
     Dosage: 100 UNIT/ML
     Route: 065
  20. XYLOCAINE [Concomitant]
     Active Substance: LIDOCAINE HYDROCHLORIDE
     Route: 065
  21. POTASSIUM CHLORIDE. [Concomitant]
     Active Substance: POTASSIUM CHLORIDE
     Dosage: IV REPLACEMENT SCALE?10-60 MEQ
     Route: 065
  22. ADVAIR HFA [Concomitant]
     Active Substance: FLUTICASONE PROPIONATE\SALMETEROL XINAFOATE
     Indication: OBLITERATIVE BRONCHIOLITIS
  23. MAALOX [ALUMINIUM HYDROXIDE;MAGNESIUM HYDROXIDE] [Concomitant]
  24. CEFPODOXIME [Concomitant]
     Active Substance: CEFPODOXIME

REACTIONS (3)
  - Pneumonia pseudomonal [Fatal]
  - Respiratory tract infection [Recovered/Resolved]
  - Pneumonia cytomegaloviral [Fatal]

NARRATIVE: CASE EVENT DATE: 20190323
